FAERS Safety Report 6131235-8 (Version None)
Quarter: 2009Q1

REPORT INFORMATION
  Report Type: 
  Country: None (occurrence: None)
  Receive Date: 20090325
  Receipt Date: 20080306
  Transmission Date: 20090719
  Serious: Yes (Hospitalization)
  Sender: FDA-Public Use
  Company Number: US-BRISTOL-MYERS SQUIBB COMPANY-14040059

PATIENT
  Age: 65 Year
  Sex: Male
  Weight: 91 kg

DRUGS (3)
  1. CETUXIMAB [Suspect]
     Indication: GASTROOESOPHAGEAL CANCER
     Dosage: 400MG/M2 FOR 120MIN ONCE;250MG/M2 FOR 60 MIN ON DAY 1,8,5
     Route: 041
     Dates: start: 20070717, end: 20071101
  2. XELODA [Concomitant]
     Dosage: Q/2H*14 DAYS. REPEAT Q21 DAYS
     Route: 048
  3. OXALIPLATIN [Concomitant]
     Dosage: 130 MG/M2 OVER 120 MINUTES 1 PER 21 DAYS.
     Route: 042

REACTIONS (2)
  - DEHYDRATION [None]
  - TACHYCARDIA [None]
